FAERS Safety Report 13955713 (Version 2)
Quarter: 2017Q4

REPORT INFORMATION
  Report Type: Spontaneous
  Country: US (occurrence: US)
  Receive Date: 20170911
  Receipt Date: 20171002
  Transmission Date: 20180320
  Serious: No
  Sender: FDA-Public Use
  Company Number: US-GLAXOSMITHKLINE-US2017GSK137702

PATIENT

DRUGS (1)
  1. ADVAIR DISKUS [Suspect]
     Active Substance: FLUTICASONE PROPIONATE\SALMETEROL XINAFOATE
     Indication: ASTHMA

REACTIONS (2)
  - Drug dose omission [Unknown]
  - Inability to afford medication [Unknown]
